FAERS Safety Report 5950876-1 (Version None)
Quarter: 2008Q4

REPORT INFORMATION
  Report Type: 
  Country: None (occurrence: None)
  Receive Date: 20081112
  Receipt Date: 20081030
  Transmission Date: 20090506
  Serious: No
  Sender: FDA-Public Use
  Company Number: JP-MERCK-0810USA03625

PATIENT
  Age: 79 Year
  Sex: Male

DRUGS (6)
  1. PEPCID [Suspect]
     Route: 048
     Dates: start: 20080401, end: 20081014
  2. ITOROL [Concomitant]
     Route: 048
  3. ASPIRIN [Concomitant]
     Indication: PERCUTANEOUS CORONARY INTERVENTION
     Route: 048
     Dates: start: 20080401
  4. PLAVIX [Concomitant]
     Indication: PERCUTANEOUS CORONARY INTERVENTION
     Route: 048
     Dates: start: 20080401
  5. LASIX [Concomitant]
     Route: 065
     Dates: start: 20080701
  6. ALDACTONE [Concomitant]
     Route: 065
     Dates: start: 20080701

REACTIONS (2)
  - HYPOCHLORAEMIA [None]
  - HYPONATRAEMIA [None]
